FAERS Safety Report 10750576 (Version 1)
Quarter: 2015Q1

REPORT INFORMATION
  Report Type: Spontaneous
  Country: US (occurrence: None)
  Receive Date: 20150123
  Receipt Date: 20150123
  Transmission Date: 20150721
  Serious: Yes (Other)
  Sender: FDA-Public Use
  Company Number: 2014AP005848

PATIENT
  Age: 24 Year
  Sex: Female

DRUGS (3)
  1. RISPERIDONE (RISPERIDONE) [Concomitant]
     Active Substance: RISPERIDONE
  2. CLONAZEPAM (CLONAZEPAM) [Concomitant]
     Active Substance: CLONAZEPAM
  3. LITHIUM CARBONATE (LITHIUM CARBONATE) CAPSULE [Suspect]
     Active Substance: LITHIUM CARBONATE
     Indication: MANIA
     Dates: start: 20111230

REACTIONS (1)
  - Hyperthyroidism [None]
